FAERS Safety Report 25651377 (Version 1)
Quarter: 2025Q3

REPORT INFORMATION
  Report Type: Report from Study
  Country: US (occurrence: US)
  Receive Date: 20250806
  Receipt Date: 20250806
  Transmission Date: 20251020
  Serious: Yes (Other)
  Sender: MALLINCKRODT
  Company Number: US-MALLINCKRODT-MNK202504578

PATIENT
  Sex: Male

DRUGS (3)
  1. CORTICOTROPIN [Suspect]
     Active Substance: CORTICOTROPIN
     Indication: Conjunctivitis
  2. HUMIRA [Concomitant]
     Active Substance: ADALIMUMAB
  3. RINVOQ [Concomitant]
     Active Substance: UPADACITINIB

REACTIONS (6)
  - Arthropathy [Unknown]
  - Metal poisoning [Unknown]
  - Tinnitus [Unknown]
  - Hypoacusis [Unknown]
  - Visual impairment [Unknown]
  - Ill-defined disorder [Unknown]
